FAERS Safety Report 7092698-7 (Version None)
Quarter: 2010Q4

REPORT INFORMATION
  Report Type: 
  Country: None (occurrence: None)
  Receive Date: 20101109
  Receipt Date: 20101109
  Transmission Date: 20110411
  Serious: Yes (Other)
  Sender: FDA-Public Use
  Company Number: None

PATIENT
  Age: 66 Year
  Sex: Male
  Weight: 77.5651 kg

DRUGS (9)
  1. NPLATE [Suspect]
     Indication: IDIOPATHIC THROMBOCYTOPENIC PURPURA
     Dosage: 375MCG ONCE WEEKLY SQ
     Route: 058
     Dates: start: 20100831, end: 20101022
  2. PROMACTA [Suspect]
     Indication: IDIOPATHIC THROMBOCYTOPENIC PURPURA
     Dosage: 50MG ONCE DAILY PO
     Route: 048
     Dates: start: 20100805, end: 20101010
  3. GABAPENTIN [Concomitant]
  4. CYANOCOBALAMIN [Concomitant]
  5. SUCRALFATE [Concomitant]
  6. NOVOLIN 70/30 [Concomitant]
  7. FOLIC ACID [Concomitant]
  8. BENAZEPRIL AND HCTZ [Concomitant]
  9. AMICAR [Concomitant]

REACTIONS (4)
  - CONFUSIONAL STATE [None]
  - INCORRECT DOSE ADMINISTERED [None]
  - MEDICATION ERROR [None]
  - MYELOFIBROSIS [None]
